FAERS Safety Report 7720587-0 (Version None)
Quarter: 2011Q3

REPORT INFORMATION
  Report Type: 
  Country: None (occurrence: None)
  Receive Date: 20110831
  Receipt Date: 20110823
  Transmission Date: 20111222
  Serious: Yes (Death)
  Sender: FDA-Public Use
  Company Number: PHHY2011IT76876

PATIENT
  Age: 56 Year
  Sex: Female

DRUGS (2)
  1. CYCLOSPORINE [Suspect]
     Indication: APLASTIC ANAEMIA
     Dosage: UNK UKN, UNK
  2. PREDNISONE [Suspect]
     Indication: APLASTIC ANAEMIA
     Dosage: 1 MG/KG/DAY

REACTIONS (2)
  - HEPATIC FAILURE [None]
  - HEPATITIS B [None]
